FAERS Safety Report 4599030-9 (Version None)
Quarter: 2005Q1

REPORT INFORMATION
  Report Type: 
  Country: None (occurrence: None)
  Receive Date: 20050302
  Receipt Date: 20050218
  Transmission Date: 20050727
  Serious: Yes (Hospitalization)
  Sender: FDA-Public Use
  Company Number: 2004IM000692

PATIENT
  Age: 42 Year
  Sex: Female

DRUGS (5)
  1. ADVAFERON (A643_INTERFERON ALFACON-1) [Suspect]
     Indication: HEPATITIS C
     Dosage: 12 MU, QD, SUBCUTANEOUS
     Route: 058
     Dates: start: 20040421, end: 20040504
  2. ADVAFERON (A643_INTERFERON ALFACON-1) [Suspect]
     Indication: HEPATITIS C
     Dosage: 12 MU, QD, SUBCUTANEOUS
     Route: 058
     Dates: start: 20040505, end: 20040621
  3. RIBAVIRIN [Suspect]
     Indication: HEPATITIS C
     Dosage: 600 MG, QD, SUBCUTANEOUS
     Route: 058
     Dates: start: 20040421, end: 20040621
  4. INDOMETHACIN [Concomitant]
  5. REBAMIPIDE [Concomitant]

REACTIONS (3)
  - ANOREXIA [None]
  - DEPRESSION [None]
  - MALAISE [None]
